FAERS Safety Report 11101573 (Version 1)
Quarter: 2015Q2

REPORT INFORMATION
  Report Type: Spontaneous
  Country: US (occurrence: US)
  Receive Date: 20150508
  Receipt Date: 20150508
  Transmission Date: 20150821
  Serious: Yes (Other)
  Sender: FDA-Public Use
  Company Number: US-PERRIGO-15US004576

PATIENT
  Age: 40 Year
  Sex: Female
  Weight: 79.82 kg

DRUGS (1)
  1. NICOTINE MINI MINT 4 MG 957 [Suspect]
     Active Substance: NICOTINE
     Indication: SMOKING CESSATION THERAPY
     Dosage: UNK, QID
     Route: 002
     Dates: start: 20150423, end: 20150424

REACTIONS (4)
  - Vomiting [Recovered/Resolved]
  - Retching [Recovered/Resolved]
  - Wrong technique in drug usage process [Recovered/Resolved]
  - Nausea [Recovered/Resolved]

NARRATIVE: CASE EVENT DATE: 20150423
